FAERS Safety Report 8073298-9 (Version None)
Quarter: 2012Q1

REPORT INFORMATION
  Report Type: 
  Country: None (occurrence: None)
  Receive Date: 20120120
  Receipt Date: 20120112
  Transmission Date: 20120608
  Serious: Yes (Death, Hospitalization)
  Sender: FDA-Public Use
  Company Number: 128652

PATIENT
  Age: 34 Year
  Sex: Female

DRUGS (1)
  1. CEFTRIAXONE [Suspect]
     Indication: PYELONEPHRITIS
     Dosage: IM
     Route: 030

REACTIONS (27)
  - OLIGOHYDRAMNIOS [None]
  - CAESAREAN SECTION [None]
  - USE OF ACCESSORY RESPIRATORY MUSCLES [None]
  - FLUID RETENTION [None]
  - BRONCHOPULMONARY ASPERGILLOSIS [None]
  - PULMONARY HYPERTENSION [None]
  - TACHYCARDIA [None]
  - AGITATION [None]
  - RENAL FAILURE ACUTE [None]
  - AGRANULOCYTOSIS [None]
  - INTESTINAL DILATATION [None]
  - MITRAL VALVE STENOSIS [None]
  - CONVULSION [None]
  - BRONCHOPNEUMONIA [None]
  - TRACHEOBRONCHITIS [None]
  - BONE MARROW FAILURE [None]
  - SEPTIC SHOCK [None]
  - MULTI-ORGAN FAILURE [None]
  - CARDIAC FAILURE CONGESTIVE [None]
  - MATERNAL EXPOSURE DURING PREGNANCY [None]
  - GENERAL PHYSICAL HEALTH DETERIORATION [None]
  - ORAL CANDIDIASIS [None]
  - PARVOVIRUS INFECTION [None]
  - PYELONEPHRITIS CHRONIC [None]
  - CARDIOGENIC SHOCK [None]
  - CYTOMEGALOVIRUS TEST POSITIVE [None]
  - METABOLIC ACIDOSIS [None]
